FAERS Safety Report 6046034-5 (Version None)
Quarter: 2009Q1

REPORT INFORMATION
  Report Type: 
  Country: None (occurrence: None)
  Receive Date: 20090116
  Receipt Date: 20090106
  Transmission Date: 20090719
  Serious: Yes (Life-Threatening, Hospitalization, Other)
  Sender: FDA-Public Use
  Company Number: 55816

PATIENT
  Age: 53 Year
  Sex: Female

DRUGS (2)
  1. CISPLATIN [Suspect]
     Indication: METASTATIC CARCINOID TUMOUR
     Dosage: 50 MG
  2. MITOMYCIN [Suspect]
     Indication: METASTATIC CARCINOID TUMOUR
     Dosage: 20 MG

REACTIONS (12)
  - ABDOMINAL TENDERNESS [None]
  - ATRIAL SEPTAL DEFECT [None]
  - CARDIAC OUTPUT DECREASED [None]
  - CONVULSION [None]
  - ENCEPHALOPATHY [None]
  - HYPOTENSION [None]
  - HYPOXIA [None]
  - MENTAL STATUS CHANGES [None]
  - PNEUMATOSIS INTESTINALIS [None]
  - PULMONARY HYPERTENSION [None]
  - SOMNOLENCE [None]
  - TREATMENT FAILURE [None]
